FAERS Safety Report 23011444 (Version 2)
Quarter: 2023Q4

REPORT INFORMATION
  Report Type: Report from Study
  Country: ZA (occurrence: ZA)
  Receive Date: 20230929
  Receipt Date: 20231027
  Transmission Date: 20240109
  Serious: Yes (Other)
  Sender: FDA-Public Use
  Company Number: ZA-SA-SAC20230927000032

PATIENT
  Age: 22 Month
  Sex: Female
  Weight: 15 kg

DRUGS (21)
  1. CAPLACIZUMAB [Suspect]
     Active Substance: CAPLACIZUMAB
     Indication: Thrombotic thrombocytopenic purpura
     Dosage: 5 MG, 1X
     Route: 041
     Dates: start: 20230919, end: 20230919
  2. CAPLACIZUMAB [Suspect]
     Active Substance: CAPLACIZUMAB
     Indication: Thrombotic thrombocytopenic purpura
     Dosage: 5 MG, 1X
     Route: 041
     Dates: start: 20230919, end: 20230919
  3. CAPLACIZUMAB [Suspect]
     Active Substance: CAPLACIZUMAB
     Indication: Thrombotic thrombocytopenic purpura
     Dosage: 5 MG, 1X
     Route: 041
     Dates: start: 20230919, end: 20230919
  4. CAPLACIZUMAB [Suspect]
     Active Substance: CAPLACIZUMAB
     Indication: Thrombotic thrombocytopenic purpura
     Dosage: 5 MG, 1X
     Route: 041
     Dates: start: 20230919, end: 20230919
  5. CAPLACIZUMAB [Suspect]
     Active Substance: CAPLACIZUMAB
     Dosage: 5 MG, QD
     Route: 058
     Dates: start: 202309, end: 20230922
  6. CAPLACIZUMAB [Suspect]
     Active Substance: CAPLACIZUMAB
     Dosage: 5 MG, QD
     Route: 058
     Dates: start: 202309, end: 20230922
  7. CAPLACIZUMAB [Suspect]
     Active Substance: CAPLACIZUMAB
     Dosage: 5 MG, QD
     Route: 058
     Dates: start: 202309, end: 20230922
  8. CAPLACIZUMAB [Suspect]
     Active Substance: CAPLACIZUMAB
     Dosage: 5 MG, QD
     Route: 058
     Dates: start: 202309, end: 20230922
  9. CAPLACIZUMAB [Suspect]
     Active Substance: CAPLACIZUMAB
     Dosage: 2.5 MG, QD
     Route: 058
     Dates: start: 202309
  10. CAPLACIZUMAB [Suspect]
     Active Substance: CAPLACIZUMAB
     Dosage: 2.5 MG, QD
     Route: 058
     Dates: start: 202309
  11. CAPLACIZUMAB [Suspect]
     Active Substance: CAPLACIZUMAB
     Dosage: 2.5 MG, QD
     Route: 058
     Dates: start: 202309
  12. CAPLACIZUMAB [Suspect]
     Active Substance: CAPLACIZUMAB
     Dosage: 2.5 MG, QD
     Route: 058
     Dates: start: 202309
  13. RITUXIMAB [Concomitant]
     Active Substance: RITUXIMAB
     Indication: Thrombotic thrombocytopenic purpura
     Dosage: 375 M2, QW
     Dates: start: 202308, end: 20230918
  14. AMLODIPINE [Concomitant]
     Active Substance: AMLODIPINE BESYLATE
     Indication: Hypertension
     Dosage: 2.5 MG, Q12H
     Route: 048
     Dates: start: 202307
  15. ENALPRIL [Concomitant]
     Indication: Hypertension
     Dosage: 2.5 MG, Q12H
     Route: 048
     Dates: start: 202307
  16. PREDNISONE [Concomitant]
     Active Substance: PREDNISONE
     Indication: Thrombotic thrombocytopenic purpura
     Dosage: 15 MG, QD
     Route: 048
     Dates: start: 202308
  17. VITAMIN D NOS [Concomitant]
     Active Substance: VITAMIN D NOS
     Indication: Adverse drug reaction
     Dosage: 800 IU, QD
     Route: 048
     Dates: start: 202308
  18. OMEPRAZOLE [Concomitant]
     Active Substance: OMEPRAZOLE
     Indication: Adverse drug reaction
     Dosage: 15 MG, QD
     Route: 048
     Dates: start: 202308
  19. ZINC [Concomitant]
     Active Substance: PYRITHIONE ZINC\ZINC\ZINC CHLORIDE
     Indication: Supplementation therapy
     Dosage: 20 MG, QD
     Route: 048
     Dates: start: 202307
  20. BACTRIM [Concomitant]
     Active Substance: SULFAMETHOXAZOLE\TRIMETHOPRIM
     Indication: Prophylaxis
     Dosage: 75 MG, QD
     Route: 048
     Dates: start: 202309
  21. PROPOXYPHENE [Concomitant]
     Active Substance: PROPOXYPHENE

REACTIONS (20)
  - Injection site bruising [Not Recovered/Not Resolved]
  - Epistaxis [Recovering/Resolving]
  - Tachycardia [Recovered/Resolved]
  - Malaise [Recovered/Resolved]
  - Irritability [Recovered/Resolved]
  - Body temperature increased [Recovered/Resolved]
  - White blood cell count decreased [Recovering/Resolving]
  - Red blood cell count decreased [Recovering/Resolving]
  - Haemoglobin decreased [Recovering/Resolving]
  - Haematocrit decreased [Recovering/Resolving]
  - Mean cell volume increased [Unknown]
  - Platelet count decreased [Recovering/Resolving]
  - Neutrophil percentage increased [Unknown]
  - Lymphocyte count decreased [Not Recovered/Not Resolved]
  - Monocyte percentage increased [Unknown]
  - Eosinophil percentage decreased [Unknown]
  - Blood lactate dehydrogenase increased [Not Recovered/Not Resolved]
  - Lymphocyte percentage abnormal [Not Recovered/Not Resolved]
  - Splenic vein thrombosis [Unknown]
  - Off label use [Unknown]

NARRATIVE: CASE EVENT DATE: 20230919
